FAERS Safety Report 4976838-9 (Version None)
Quarter: 2006Q2

REPORT INFORMATION
  Report Type: 
  Country: None (occurrence: None)
  Receive Date: 20060404
  Receipt Date: 20060323
  Transmission Date: 20061013
  Serious: No
  Sender: FDA-Public Use
  Company Number: HQWYE534327MAR06

PATIENT
  Age: 11 Year
  Sex: Male
  Weight: 33 kg

DRUGS (1)
  1. REFACTO [Suspect]
     Indication: FACTOR VIII DEFICIENCY
     Dosage: 1000 UNITS +/- 10% ON DEMAND (30 UNITS/KG) BASED ON TARGET FVIII LEVEL OF 60%, INTRAVENOUS
     Route: 042
     Dates: start: 20050101

REACTIONS (1)
  - DRUG EFFECT DECREASED [None]
